FAERS Safety Report 9210302 (Version 2)
Quarter: 2013Q2

REPORT INFORMATION
  Report Type: Spontaneous
  Country: US (occurrence: US)
  Receive Date: 20130404
  Receipt Date: 20130415
  Transmission Date: 20140414
  Serious: Yes (Other)
  Sender: FDA-Public Use
  Company Number: PHEH2013US007616

PATIENT
  Sex: Female

DRUGS (12)
  1. METOPROLOL [Suspect]
     Indication: BLOOD PRESSURE ABNORMAL
     Dosage: 50 MG, BID
  2. DIOVAN HCT [Suspect]
     Indication: BLOOD PRESSURE ABNORMAL
     Dosage: 1 DF (160 MG VALS/25 MG HCT) DAILY
  3. CLOPIDOGREL [Suspect]
     Indication: ANTICOAGULANT THERAPY
     Dosage: 75 MG, QD
  4. GABAPENTIN [Suspect]
     Indication: NEURALGIA
     Dosage: 600 MG, TID
  5. GABAPENTIN [Suspect]
     Dosage: 1800 MG, UNK
  6. MULTAQ [Suspect]
     Indication: ARRHYTHMIA
     Dosage: 400 MG, BID
  7. MULTAQ [Suspect]
     Dosage: 400 MG, QD
  8. PLAVIX [Suspect]
     Indication: ANTICOAGULANT THERAPY
     Dosage: 75 MG, QD
  9. BENADRYL /00647601/ [Suspect]
     Indication: SLEEP DISORDER
     Dosage: UNK UKN, UNK
  10. FOLBIC [Concomitant]
     Dosage: UNK UKN, UNK
  11. CRESTOR [Concomitant]
     Indication: BLOOD CHOLESTEROL
     Dosage: UNK UKN, UNK
  12. ASPIRIN [Concomitant]
     Dosage: UNK UKN, UNK

REACTIONS (8)
  - Arterial rupture [Unknown]
  - Asthenia [Unknown]
  - Limb injury [Unknown]
  - Haemorrhage [Unknown]
  - Feeling abnormal [Unknown]
  - Contusion [Unknown]
  - Dyspnoea [Unknown]
  - Dizziness [Unknown]
